FAERS Safety Report 17441590 (Version 2)
Quarter: 2020Q1

REPORT INFORMATION
  Report Type: Report from Study
  Country: None (occurrence: ID)
  Receive Date: 20200220
  Receipt Date: 20200324
  Transmission Date: 20200409
  Serious: Yes (Other)
  Sender: FDA-Public Use
  Company Number: ID-ABBVIE-20K-079-3285653-00

PATIENT

DRUGS (2)
  1. IMBRUVICA [Suspect]
     Active Substance: IBRUTINIB
     Indication: CHRONIC LYMPHOCYTIC LEUKAEMIA
     Route: 048
  2. IMBRUVICA [Suspect]
     Active Substance: IBRUTINIB
     Dosage: REDUCED DOSE
     Route: 048

REACTIONS (3)
  - Lymphocytosis [Recovered/Resolved]
  - Hypoglycaemia [Recovered/Resolved]
  - Pneumonia [Recovered/Resolved]
